FAERS Safety Report 4557984-0 (Version None)
Quarter: 2005Q1

REPORT INFORMATION
  Report Type: 
  Country: None (occurrence: None)
  Receive Date: 20050121
  Receipt Date: 20040322
  Transmission Date: 20050727
  Serious: No
  Sender: FDA-Public Use
  Company Number: US-BRISTOL-MYERS SQUIBB COMPANY-12557476

PATIENT
  Age: 43 Year
  Sex: Male

DRUGS (3)
  1. SERZONE [Suspect]
     Indication: ANXIETY
     Route: 048
     Dates: start: 20010301, end: 20020201
  2. SERZONE [Suspect]
     Indication: MOOD ALTERED
     Route: 048
     Dates: start: 20010301, end: 20020201
  3. REBETRON [Suspect]
     Indication: HEPATITIS C
     Dosage: DOSE = RIBAVIRIN 1200 MG/ INTRON 3MU
     Route: 048
     Dates: start: 20010305, end: 20020201

REACTIONS (2)
  - INSOMNIA [None]
  - NAUSEA [None]
